FAERS Safety Report 9471100 (Version 2)
Quarter: 2014Q2

REPORT INFORMATION
  Report Type: Spontaneous
  Country: US (occurrence: US)
  Receive Date: 20130822
  Receipt Date: 20140502
  Transmission Date: 20141212
  Serious: Yes (Hospitalization)
  Sender: FDA-Public Use
  Company Number: US-B.I. PHARMACEUTICALS,INC./RIDGEFIELD-2013-BI-25638BP

PATIENT
  Sex: Male

DRUGS (6)
  1. PRADAXA [Suspect]
     Indication: ANTICOAGULANT THERAPY
     Dosage: 300 MG
     Route: 065
     Dates: start: 20120618, end: 20120630
  2. PRADAXA [Suspect]
     Indication: ATRIAL FIBRILLATION
  3. NUCYNTA [Concomitant]
     Dosage: 200 MG
     Route: 048
  4. ALPHAGAN [Concomitant]
     Route: 065
  5. MEGESTEROL [Concomitant]
     Route: 065
  6. TRAVATAN [Concomitant]
     Route: 065

REACTIONS (3)
  - Gastrointestinal haemorrhage [Recovered/Resolved]
  - Haemorrhagic anaemia [Unknown]
  - International normalised ratio increased [Unknown]
